FAERS Safety Report 5644241-4 (Version None)
Quarter: 2008Q1

REPORT INFORMATION
  Report Type: 
  Country: None (occurrence: None)
  Receive Date: 20080227
  Receipt Date: 20080227
  Transmission Date: 20080703
  Serious: Yes (Disabling)
  Sender: FDA-Public Use
  Company Number: None

PATIENT
  Age: 67 Year
  Sex: Female
  Weight: 60.3284 kg

DRUGS (1)
  1. ZETIA [Suspect]
     Indication: BLOOD CHOLESTEROL INCREASED
     Dosage: 10 MG 1 TABLET PER DAY BUCCAL
     Route: 002
     Dates: start: 20070403, end: 20071212

REACTIONS (8)
  - FATIGUE [None]
  - GASTROINTESTINAL PAIN [None]
  - MUSCLE DISORDER [None]
  - MYALGIA [None]
  - PAIN [None]
  - RENAL DISORDER [None]
  - RENAL PAIN [None]
  - WEIGHT DECREASED [None]
